FAERS Safety Report 7446899-6 (Version None)
Quarter: 2011Q2

REPORT INFORMATION
  Report Type: 
  Country: None (occurrence: None)
  Receive Date: 20110429
  Receipt Date: 20101115
  Transmission Date: 20111010
  Serious: No
  Sender: FDA-Public Use
  Company Number: US-ASTRAZENECA-2010SE54542

PATIENT
  Age: 855 Month
  Sex: Female

DRUGS (1)
  1. NEXIUM [Suspect]
     Route: 048

REACTIONS (5)
  - MALAISE [None]
  - SWELLING [None]
  - MUSCLE SPASMS [None]
  - INFLAMMATION [None]
  - DRUG DOSE OMISSION [None]
